FAERS Safety Report 8162192-0 (Version None)
Quarter: 2012Q1

REPORT INFORMATION
  Report Type: 
  Country: None (occurrence: None)
  Receive Date: 20120224
  Receipt Date: 20111219
  Transmission Date: 20120608
  Serious: No
  Sender: FDA-Public Use
  Company Number: US-BRISTOL-MYERS SQUIBB COMPANY-16302937

PATIENT
  Age: 68 Year
  Sex: Female
  Weight: 86 kg

DRUGS (1)
  1. METFORMIN HCL [Suspect]
     Dates: start: 20100401

REACTIONS (4)
  - MALAISE [None]
  - DIARRHOEA [None]
  - NAUSEA [None]
  - FATIGUE [None]
